FAERS Safety Report 25060005 (Version 1)
Quarter: 2025Q1

REPORT INFORMATION
  Report Type: Report from Study
  Country: DE (occurrence: DE)
  Receive Date: 20250310
  Receipt Date: 20250310
  Transmission Date: 20250409
  Serious: Yes (Other)
  Sender: DAIICHI
  Company Number: DE-ASTRAZENECA-202412GLO001036DE

PATIENT
  Sex: Female
  Weight: 68 kg

DRUGS (4)
  1. ENHERTU [Suspect]
     Active Substance: FAM-TRASTUZUMAB DERUXTECAN-NXKI
     Indication: HER2 positive breast cancer
     Route: 042
     Dates: start: 20241030
  2. LETROZOLE [Concomitant]
     Active Substance: LETROZOLE
     Indication: Product used for unknown indication
     Dosage: 2.5 UNK, QD
     Route: 048
  3. JONOSTERIL [CALCIUM ACETATE;MAGNESIUM ACETATE TETRAHYDRATE;POTASSIUM A [Concomitant]
     Indication: Product used for unknown indication
     Dosage: 500 ML, QD
     Route: 042
     Dates: start: 20241129
  4. .ALPHA.-TOCOPHEROL\ERGOCALCIFEROL\PHYTONADIONE\VITAMIN A [Concomitant]
     Active Substance: .ALPHA.-TOCOPHEROL\ERGOCALCIFEROL\PHYTONADIONE\VITAMIN A
     Indication: Product used for unknown indication
     Dosage: 100 ML, QD
     Route: 042
     Dates: start: 20241129

REACTIONS (2)
  - Chills [Recovered/Resolved]
  - Nausea [Recovered/Resolved]

NARRATIVE: CASE EVENT DATE: 20241129
